FAERS Safety Report 7211224-2 (Version None)
Quarter: 2011Q1

REPORT INFORMATION
  Report Type: 
  Country: None (occurrence: None)
  Receive Date: 20110105
  Receipt Date: 20101227
  Transmission Date: 20110831
  Serious: Yes (Hospitalization)
  Sender: FDA-Public Use
  Company Number: JP-JNJFOC-20101202507

PATIENT
  Sex: Female
  Weight: 41 kg

DRUGS (11)
  1. FOLIAMIN [Concomitant]
     Indication: PROPHYLAXIS
     Route: 048
  2. MUCOSTA [Concomitant]
     Indication: PROPHYLAXIS
     Route: 048
  3. CALBLOCK [Concomitant]
     Indication: HYPERTENSION
     Route: 048
  4. GOLIMUMAB [Suspect]
     Indication: RHEUMATOID ARTHRITIS
     Route: 058
  5. GOLIMUMAB [Suspect]
     Route: 058
  6. DIOVAN [Concomitant]
     Indication: HYPERTENSION
     Route: 048
  7. MOBIC [Concomitant]
     Indication: RHEUMATOID ARTHRITIS
     Route: 048
  8. ONEALFA [Concomitant]
     Indication: OSTEOPOROSIS
     Route: 048
  9. RHEUMATREX [Suspect]
     Indication: RHEUMATOID ARTHRITIS
     Route: 048
  10. PREDNISOLONE [Suspect]
     Indication: RHEUMATOID ARTHRITIS
     Route: 048
  11. TAGAMET [Concomitant]
     Indication: PROPHYLAXIS
     Route: 048

REACTIONS (2)
  - PNEUMONIA [None]
  - DIARRHOEA [None]
